FAERS Safety Report 5304033-2 (Version None)
Quarter: 2007Q1

REPORT INFORMATION
  Report Type: 
  Country: None (occurrence: None)
  Receive Date: 20070201
  Receipt Date: 20061110
  Transmission Date: 20070707
  Serious: No
  Sender: FDA-Public Use
  Company Number: 2006PV025057

PATIENT
  Age: 55 Year
  Sex: Male
  Weight: 123.3784 kg

DRUGS (5)
  1. BYETTA [Suspect]
     Indication: DIABETES MELLITUS
     Dosage: SEE IMAGE
     Route: 058
     Dates: start: 20060921, end: 20061020
  2. BYETTA [Suspect]
     Indication: DIABETES MELLITUS
     Dosage: SEE IMAGE
     Route: 058
     Dates: start: 20061021
  3. HUMULIN N [Concomitant]
  4. HUMALOG [Concomitant]
  5. AVANDIA [Concomitant]

REACTIONS (9)
  - CATARACT [None]
  - DECREASED APPETITE [None]
  - EXCORIATION [None]
  - FALL [None]
  - GLAUCOMA [None]
  - HAND FRACTURE [None]
  - HYPOGLYCAEMIA [None]
  - NEUROPATHY PERIPHERAL [None]
  - WEIGHT DECREASED [None]
